FAERS Safety Report 15696893 (Version 2)
Quarter: 2020Q2

REPORT INFORMATION
  Report Type: Spontaneous
  Country: US (occurrence: US)
  Receive Date: 20181206
  Receipt Date: 20200528
  Transmission Date: 20200713
  Serious: No
  Sender: FDA-Public Use
  Company Number: US-PFIZER INC-2018495762

PATIENT
  Age: 83 Year
  Sex: Female

DRUGS (1)
  1. AMLODIPINE BESILATE [Suspect]
     Active Substance: AMLODIPINE BESYLATE
     Dosage: UNK

REACTIONS (5)
  - Muscular weakness [Unknown]
  - Palpitations [Unknown]
  - Drug intolerance [Unknown]
  - Insomnia [Unknown]
  - Pain in extremity [Unknown]
